FAERS Safety Report 9144643 (Version 2)
Quarter: 2013Q1

REPORT INFORMATION
  Report Type: Spontaneous
  Country: DK (occurrence: DE)
  Receive Date: 20130306
  Receipt Date: 20130325
  Transmission Date: 20140127
  Serious: Yes (Other)
  Sender: FDA-Public Use
  Company Number: DE-FRI-1000043138

PATIENT
  Age: 69 Year
  Sex: Female
  Weight: 85 kg

DRUGS (5)
  1. ACLIDINIUM BROMIDE [Suspect]
     Indication: CHRONIC OBSTRUCTIVE PULMONARY DISEASE
     Dosage: 322 MICROGRAM
  2. BISOPROLOL [Concomitant]
  3. PANTOZOL [Concomitant]
  4. L-THYROXIN [Concomitant]
  5. ALVESCO [Concomitant]

REACTIONS (1)
  - Angioedema [Recovered/Resolved]
